FAERS Safety Report 21327676 (Version 1)
Quarter: 2022Q3

REPORT INFORMATION
  Report Type: Spontaneous
  Country: GB (occurrence: GB)
  Receive Date: 20220913
  Receipt Date: 20220913
  Transmission Date: 20221027
  Serious: Yes (Disabling, Other)
  Sender: FDA-Public Use
  Company Number: GB-MHRA-MED-202209010719503960-FBKVD

PATIENT
  Age: 49 Year
  Sex: Female
  Weight: 108 kg

DRUGS (2)
  1. GABAPENTIN [Suspect]
     Active Substance: GABAPENTIN
     Indication: Migraine
     Dosage: 300 MILLIGRAM, ONCE A DAY
     Route: 065
     Dates: start: 20220721
  2. NEFOPAM [Concomitant]
     Active Substance: NEFOPAM
     Indication: Migraine
     Dosage: UNK
     Route: 065
     Dates: start: 20220721

REACTIONS (1)
  - Feeling abnormal [Not Recovered/Not Resolved]

NARRATIVE: CASE EVENT DATE: 20220831
